FAERS Safety Report 5951401-1 (Version None)
Quarter: 2008Q4

REPORT INFORMATION
  Report Type: 
  Country: None (occurrence: None)
  Receive Date: 20081113
  Receipt Date: 20081104
  Transmission Date: 20090506
  Serious: Yes (Hospitalization)
  Sender: FDA-Public Use
  Company Number: US-BIOGENIDEC-2008BI020719

PATIENT
  Age: 53 Year
  Sex: Female

DRUGS (1)
  1. AVONEX [Suspect]
     Indication: MULTIPLE SCLEROSIS
     Route: 030
     Dates: start: 20061224, end: 20080525

REACTIONS (5)
  - HERPES ZOSTER OPHTHALMIC [None]
  - KIDNEY INFECTION [None]
  - MULTIPLE SCLEROSIS RELAPSE [None]
  - OPTIC NEURITIS [None]
  - URINARY TRACT INFECTION [None]
